FAERS Safety Report 19804751 (Version 1)
Quarter: 2021Q3

REPORT INFORMATION
  Report Type: Spontaneous
  Country: US (occurrence: US)
  Receive Date: 20210908
  Receipt Date: 20210908
  Transmission Date: 20211014
  Serious: Yes (Other)
  Sender: FDA-Public Use
  Company Number: US-KYOWAKIRIN-2021BKK015171

PATIENT

DRUGS (2)
  1. CRYSVITA [Suspect]
     Active Substance: BUROSUMAB-TWZA
     Indication: HEREDITARY HYPOPHOSPHATAEMIC RICKETS
     Dosage: UNK, 1X/4 WEEKS
     Route: 058
     Dates: start: 20210813
  2. CRYSVITA [Suspect]
     Active Substance: BUROSUMAB-TWZA
     Dosage: UNK, EVERY 4 WEEKS
     Route: 058
     Dates: start: 20210714, end: 20210714

REACTIONS (10)
  - Angina pectoris [Not Recovered/Not Resolved]
  - Wrong technique in product usage process [Recovered/Resolved]
  - Dizziness [Unknown]
  - Vomiting [Recovered/Resolved]
  - Fall [Unknown]
  - Electric shock sensation [Recovered/Resolved]
  - Head injury [Unknown]
  - Vertigo [Recovered/Resolved]
  - Balance disorder [Unknown]
  - Joint injury [Unknown]

NARRATIVE: CASE EVENT DATE: 20210813
